FAERS Safety Report 10793994 (Version 1)
Quarter: 2015Q1

REPORT INFORMATION
  Report Type: Spontaneous
  Country: PL (occurrence: PL)
  Receive Date: 20150213
  Receipt Date: 20150213
  Transmission Date: 20150721
  Serious: Yes (Hospitalization)
  Sender: FDA-Public Use
  Company Number: PHHY2015PL014056

PATIENT
  Age: 32 Year
  Sex: Female

DRUGS (4)
  1. MARCAINE [Suspect]
     Active Substance: BUPIVACAINE HYDROCHLORIDE
     Indication: PRODUCT USED FOR UNKNOWN INDICATION
     Dosage: 2.6 ML, UNK
     Route: 065
  2. METOCLOPRAMIDE. [Suspect]
     Active Substance: METOCLOPRAMIDE
     Indication: PRODUCT USED FOR UNKNOWN INDICATION
     Dosage: 5 MG, UNK
     Route: 065
  3. EPHEDRINE [Suspect]
     Active Substance: EPHEDRINE
     Indication: PRODUCT USED FOR UNKNOWN INDICATION
     Route: 065
  4. BIOFAZOLIN//CEFAZOLIN [Suspect]
     Active Substance: CEFAZOLIN SODIUM
     Indication: PRODUCT USED FOR UNKNOWN INDICATION
     Dosage: 1 G, UNK
     Route: 065

REACTIONS (19)
  - Dysarthria [Recovering/Resolving]
  - Phaeochromocytoma [Recovering/Resolving]
  - Normetanephrine urine increased [Recovering/Resolving]
  - Haemorrhagic tumour necrosis [Recovering/Resolving]
  - Haemodynamic instability [Recovering/Resolving]
  - Hypertensive crisis [Recovering/Resolving]
  - Cerebellar ischaemia [Recovering/Resolving]
  - Headache [Recovering/Resolving]
  - Metanephrine urine increased [Recovering/Resolving]
  - Gaze palsy [Recovering/Resolving]
  - Pulmonary oedema [Recovering/Resolving]
  - Quadriparesis [Recovering/Resolving]
  - Hyperhidrosis [Recovering/Resolving]
  - Cardiac arrest [Recovering/Resolving]
  - Palpitations [Recovering/Resolving]
  - Maternal exposure during pregnancy [Unknown]
  - Stress cardiomyopathy [Recovering/Resolving]
  - Memory impairment [Recovering/Resolving]
  - Dyspnoea [Recovering/Resolving]
